FAERS Safety Report 6800670-4 (Version None)
Quarter: 2010Q2

REPORT INFORMATION
  Report Type: 
  Country: None (occurrence: None)
  Receive Date: 20100629
  Receipt Date: 20100615
  Transmission Date: 20101027
  Serious: Yes (Other)
  Sender: FDA-Public Use
  Company Number: PHHY2010ES38765

PATIENT
  Age: 49 Year
  Sex: Male

DRUGS (2)
  1. VALSARTAN [Suspect]
     Indication: HYPERTENSION
     Dosage: 80 MG, QD
     Route: 048
  2. DICLOFENAC SODIUM [Interacting]
     Indication: ARTHRALGIA
     Dosage: 50 MG, TID
     Dates: start: 20100529, end: 20100604

REACTIONS (2)
  - DRUG INTERACTION [None]
  - HYPERTENSIVE CRISIS [None]
